FAERS Safety Report 16479237 (Version 1)
Quarter: 2019Q2

REPORT INFORMATION
  Report Type: Spontaneous
  Country: US (occurrence: US)
  Receive Date: 20190626
  Receipt Date: 20190626
  Transmission Date: 20190711
  Serious: Yes (Hospitalization)
  Sender: FDA-Public Use
  Company Number: US-SAOL THERAPEUTICS-2018SAO01082

PATIENT
  Age: 14 Year
  Sex: Female
  Weight: 44 kg

DRUGS (1)
  1. LIORESAL [Suspect]
     Active Substance: BACLOFEN
     Indication: QUADRIPLEGIA
     Dosage: 210 ?G, \DAY
     Route: 037
     Dates: start: 20121003

REACTIONS (5)
  - Flushing [Recovered/Resolved]
  - Device dislocation [Recovered/Resolved]
  - Hypertension [Recovered/Resolved]
  - Drug withdrawal syndrome [Recovered/Resolved]
  - Device kink [Recovered/Resolved]

NARRATIVE: CASE EVENT DATE: 20181112
